FAERS Safety Report 6012663-8 (Version None)
Quarter: 2008Q4

REPORT INFORMATION
  Report Type: 
  Country: None (occurrence: None)
  Receive Date: 20081218
  Receipt Date: 20081209
  Transmission Date: 20090506
  Serious: Yes (Hospitalization)
  Sender: FDA-Public Use
  Company Number: FR-GILEAD-2008-0019393

PATIENT
  Sex: Male

DRUGS (15)
  1. TRUVADA [Suspect]
     Indication: HIV INFECTION
     Route: 048
     Dates: start: 20080521, end: 20080530
  2. EPIVIR [Concomitant]
     Indication: HIV INFECTION
     Route: 048
     Dates: start: 20080521
  3. SUSTIVA [Concomitant]
     Indication: HIV INFECTION
     Route: 048
     Dates: start: 20080521
  4. BACTRIM [Concomitant]
     Route: 048
     Dates: start: 20080521
  5. MYAMBUTOL [Concomitant]
     Indication: TUBERCULOSIS
     Route: 048
     Dates: start: 20080523
  6. ROCEPHIN [Concomitant]
     Route: 048
     Dates: start: 20080506
  7. NAPROXEN SODIUM [Concomitant]
     Route: 048
     Dates: start: 20080506
  8. KALETRA [Concomitant]
     Indication: HIV INFECTION
     Route: 048
     Dates: start: 20080521, end: 20080530
  9. RIFATER [Concomitant]
     Indication: TUBERCULOSIS
     Route: 048
     Dates: start: 20080523
  10. RIMIFON [Concomitant]
  11. RIFADIN [Concomitant]
  12. CARDENSIEL [Concomitant]
  13. AMLOD [Concomitant]
  14. TAZOCILLINE [Concomitant]
  15. ATARAX [Concomitant]

REACTIONS (3)
  - HYPERTENSION [None]
  - PROTEINURIA [None]
  - RENAL FAILURE ACUTE [None]
